FAERS Safety Report 7091270-2 (Version None)
Quarter: 2010Q4

REPORT INFORMATION
  Report Type: 
  Country: None (occurrence: None)
  Receive Date: 20101109
  Receipt Date: 20101029
  Transmission Date: 20110411
  Serious: Yes (Hospitalization)
  Sender: FDA-Public Use
  Company Number: NL-AMGEN-NLDSP2010002099

PATIENT

DRUGS (9)
  1. ENBREL [Suspect]
     Dosage: UNKNOWN
     Dates: end: 20100701
  2. ENBREL [Suspect]
     Dosage: UNKNOWN
     Dates: start: 20101001
  3. ENBREL [Suspect]
     Dates: start: 20080101, end: 20100701
  4. ENBREL [Suspect]
     Dates: start: 20101001
  5. DICLOFENAC SODIUM [Concomitant]
  6. PREDNISONE [Concomitant]
  7. OMEPRAZOLE [Concomitant]
  8. METHOTREXATE [Concomitant]
  9. PLAQUENIL [Concomitant]

REACTIONS (1)
  - MASS [None]
